FAERS Safety Report 8034080-1 (Version None)
Quarter: 2011Q4

REPORT INFORMATION
  Report Type: 
  Country: None (occurrence: None)
  Receive Date: 20111202
  Receipt Date: 20110830
  Transmission Date: 20120403
  Serious: Yes (Hospitalization)
  Sender: FDA-Public Use
  Company Number: WAES 1108USA03676

PATIENT
  Age: 83 Year
  Sex: Female
  Weight: 85.7298 kg

DRUGS (2)
  1. CALTRATE + D [Concomitant]
  2. FOSAMAX [Suspect]
     Indication: BONE DISORDER
     Dosage: 70 MG/WKY/PO
     Route: 048
     Dates: start: 20000827, end: 20090927

REACTIONS (5)
  - ABDOMINAL DISCOMFORT [None]
  - TOOTH DISORDER [None]
  - DIZZINESS [None]
  - MALAISE [None]
  - HEADACHE [None]
